FAERS Safety Report 15848684 (Version 2)
Quarter: 2019Q2

REPORT INFORMATION
  Report Type: Report from Study
  Country: US (occurrence: US)
  Receive Date: 20190121
  Receipt Date: 20190430
  Transmission Date: 20190711
  Serious: No
  Sender: FDA-Public Use
  Company Number: US-AGIOS-1811US00325

PATIENT

DRUGS (2)
  1. TIBSOVO [Suspect]
     Active Substance: IVOSIDENIB
     Indication: BRAIN NEOPLASM MALIGNANT
     Dosage: 250 MILLIGRAMS, TWO TABLETS (500MG) DAILY
     Route: 048
     Dates: start: 20181109
  2. TIBSOVO [Suspect]
     Active Substance: IVOSIDENIB
     Dosage: 250 MILLIGRAMS, TWO TABLETS (500MG) DAILY
     Route: 048
     Dates: start: 20181109

REACTIONS (2)
  - Fungal infection [Unknown]
  - Off label use [Unknown]
